FAERS Safety Report 6224419-1 (Version None)
Quarter: 2009Q2

REPORT INFORMATION
  Report Type: 
  Country: None (occurrence: None)
  Receive Date: 20090612
  Receipt Date: 20090319
  Transmission Date: 20091009
  Serious: Yes (Hospitalization, Other)
  Sender: FDA-Public Use
  Company Number: US-ABBOTT-09P-163-0563427-00

PATIENT
  Sex: Male
  Weight: 62.652 kg

DRUGS (8)
  1. HUMIRA [Suspect]
     Indication: CROHN'S DISEASE
     Route: 058
     Dates: start: 20080917
  2. VITAMIN B-12 [Concomitant]
     Indication: ANAEMIA
  3. PROTONIX [Concomitant]
     Indication: GASTROOESOPHAGEAL REFLUX DISEASE
  4. ENTECORT [Concomitant]
     Indication: INFLAMMATION
  5. LEXAPRO [Concomitant]
     Indication: ANXIETY
     Route: 048
  6. AMBIEN CR [Concomitant]
     Indication: INSOMNIA
     Route: 048
  7. VICODIN [Concomitant]
     Indication: PAIN
     Route: 048
  8. CARISOPRODOL [Concomitant]
     Indication: PAIN
     Route: 048

REACTIONS (3)
  - ANAEMIA [None]
  - GASTROINTESTINAL HAEMORRHAGE [None]
  - POSTOPERATIVE WOUND INFECTION [None]
